FAERS Safety Report 23286210 (Version 1)
Quarter: 2023Q4

REPORT INFORMATION
  Report Type: Spontaneous
  Country: US (occurrence: US)
  Receive Date: 20231212
  Receipt Date: 20231212
  Transmission Date: 20240109
  Serious: Yes (Death, Other)
  Sender: FDA-Public Use
  Company Number: US-JNJFOC-20231212107

PATIENT

DRUGS (2)
  1. IMBRUVICA [Suspect]
     Active Substance: IBRUTINIB
     Indication: Chronic lymphocytic leukaemia
     Route: 048
  2. DUVELISIB [Suspect]
     Active Substance: DUVELISIB
     Indication: Chronic lymphocytic leukaemia
     Route: 065

REACTIONS (5)
  - Sudden death [Fatal]
  - Arrhythmia [Unknown]
  - Palpitations [Unknown]
  - Bradycardia [Unknown]
  - Ventricular extrasystoles [Unknown]
